FAERS Safety Report 5222307-0 (Version None)
Quarter: 2007Q1

REPORT INFORMATION
  Report Type: 
  Country: None (occurrence: None)
  Receive Date: 20070124
  Receipt Date: 20070110
  Transmission Date: 20070707
  Serious: Yes (Hospitalization)
  Sender: FDA-Public Use
  Company Number: 2005BI009567

PATIENT
  Age: 50 Year
  Sex: Female

DRUGS (1)
  1. AVONEX [Suspect]
     Indication: MULTIPLE SCLEROSIS
     Dosage: 30 UG; QW; IM
     Route: 030
     Dates: start: 20050211

REACTIONS (11)
  - BALANCE DISORDER [None]
  - BODY FAT DISORDER [None]
  - COLON CANCER RECURRENT [None]
  - FATIGUE [None]
  - INFLUENZA LIKE ILLNESS [None]
  - LIVER DISORDER [None]
  - MENOPAUSE [None]
  - PAIN [None]
  - RENAL DISORDER [None]
  - TEMPERATURE INTOLERANCE [None]
  - UNEVALUABLE EVENT [None]
